FAERS Safety Report 10194312 (Version 1)
Quarter: 2014Q2

REPORT INFORMATION
  Report Type: Report from Study
  Country: US (occurrence: US)
  Receive Date: 20140526
  Receipt Date: 20140526
  Transmission Date: 20141212
  Serious: Yes (Other)
  Sender: FDA-Public Use
  Company Number: US-ROCHE-1404946

PATIENT
  Sex: Male
  Weight: 54 kg

DRUGS (2)
  1. NUTROPIN AQ [Suspect]
     Indication: BODY HEIGHT BELOW NORMAL
     Route: 058
     Dates: end: 201405
  2. NUTROPIN AQ [Suspect]
     Route: 058
     Dates: start: 201405

REACTIONS (2)
  - Insulin-like growth factor increased [Unknown]
  - Overdose [Unknown]
